FAERS Safety Report 4626414-2 (Version None)
Quarter: 2005Q1

REPORT INFORMATION
  Report Type: 
  Country: None (occurrence: None)
  Receive Date: 20050330
  Receipt Date: 20050322
  Transmission Date: 20050727
  Serious: Yes (Disabling)
  Sender: FDA-Public Use
  Company Number: 2005048759

PATIENT

DRUGS (5)
  1. ATORVASTATIN (ATORVASTATIN) [Suspect]
     Indication: BLOOD CHOLESTEROL INCREASED
     Dosage: (10 MG), ORAL
     Route: 048
     Dates: start: 19990101, end: 19991125
  2. ATENOLOL [Concomitant]
  3. TICLOPIDINE HCL [Concomitant]
  4. ENALAPRIL MALEATE [Concomitant]
  5. ASPIRIN [Concomitant]

REACTIONS (4)
  - MUSCLE ATROPHY [None]
  - MUSCULAR WEAKNESS [None]
  - MYOPATHY [None]
  - NEUROPATHY PERIPHERAL [None]
